FAERS Safety Report 20124633 (Version 1)
Quarter: 2021Q4

REPORT INFORMATION
  Report Type: Spontaneous
  Country: US (occurrence: None)
  Receive Date: 20211126
  Receipt Date: 20211126
  Transmission Date: 20220303
  Serious: No
  Sender: FDA-Public Use
  Company Number: None

PATIENT
  Age: 83 Year
  Sex: Male

DRUGS (1)
  1. PREDNISONE [Suspect]
     Active Substance: PREDNISONE
     Dosage: FREQUENCY : DAILY;?
     Route: 048
     Dates: start: 20210820, end: 20211003

REACTIONS (5)
  - Substance-induced psychotic disorder [None]
  - Mania [None]
  - Urinary tract infection [None]
  - Diverticulitis [None]
  - Delirium [None]

NARRATIVE: CASE EVENT DATE: 20210920
